FAERS Safety Report 15644348 (Version 2)
Quarter: 2018Q4

REPORT INFORMATION
  Report Type: Spontaneous
  Country: US (occurrence: US)
  Receive Date: 20181121
  Receipt Date: 20181130
  Transmission Date: 20190205
  Serious: Yes (Hospitalization, Other)
  Sender: FDA-Public Use
  Company Number: US-UNITED THERAPEUTICS-UNT-2018-018936

PATIENT
  Age: 82 Year
  Sex: Female
  Weight: 67.12 kg

DRUGS (1)
  1. REMODULIN [Suspect]
     Active Substance: TREPROSTINIL
     Indication: PULMONARY ARTERIAL HYPERTENSION
     Dosage: 0.082 ?G/KG, CONTINUING
     Route: 041
     Dates: start: 20141118

REACTIONS (1)
  - Haemorrhage urinary tract [Unknown]

NARRATIVE: CASE EVENT DATE: 20181113
